FAERS Safety Report 20902380 (Version 1)
Quarter: 2022Q2

REPORT INFORMATION
  Report Type: Spontaneous
  Country: ES (occurrence: ES)
  Receive Date: 20220601
  Receipt Date: 20220601
  Transmission Date: 20220721
  Serious: Yes (Life-Threatening, Hospitalization)
  Sender: FDA-Public Use
  Company Number: None

PATIENT
  Age: 72 Year
  Sex: Female

DRUGS (4)
  1. OBINUTUZUMAB [Suspect]
     Active Substance: OBINUTUZUMAB
     Indication: B-cell small lymphocytic lymphoma stage I
     Dosage: 100 MG
     Route: 041
     Dates: start: 20220425, end: 20220425
  2. ACETAMINOPHEN [Suspect]
     Active Substance: ACETAMINOPHEN
     Indication: Chemotherapy side effect prophylaxis
     Route: 048
     Dates: start: 20220425, end: 20220425
  3. DEXCHLORPHENIRAMINE [Concomitant]
     Active Substance: DEXCHLORPHENIRAMINE
     Indication: Chemotherapy side effect prophylaxis
     Route: 051
     Dates: start: 20220425, end: 20220425
  4. METHYLPREDNISOLONE [Concomitant]
     Active Substance: METHYLPREDNISOLONE
     Indication: Chemotherapy side effect prophylaxis
     Route: 051
     Dates: start: 20220425, end: 20220425

REACTIONS (4)
  - Hypertransaminasaemia [Recovering/Resolving]
  - Pyrexia [Unknown]
  - Hepatitis [Unknown]
  - Chills [Unknown]

NARRATIVE: CASE EVENT DATE: 20220425
